FAERS Safety Report 24269398 (Version 1)
Quarter: 2024Q3

REPORT INFORMATION
  Report Type: Spontaneous
  Country: US (occurrence: US)
  Receive Date: 20240830
  Receipt Date: 20240830
  Transmission Date: 20241016
  Serious: No
  Sender: RECKITT BENCKISER
  Company Number: US-PROD-AS2-212756134-RB-084881-2024

PATIENT
  Sex: Female

DRUGS (1)
  1. MUCINEX [Suspect]
     Active Substance: GUAIFENESIN
     Indication: Cough
     Dosage: TOOK THE PRODUCT FOR 7 DAYS, UNKNOWN
     Route: 048

REACTIONS (1)
  - Drug ineffective [Not Recovered/Not Resolved]
